FAERS Safety Report 13026343 (Version 3)
Quarter: 2017Q2

REPORT INFORMATION
  Report Type: Spontaneous
  Country: GB (occurrence: GB)
  Receive Date: 20161214
  Receipt Date: 20170427
  Transmission Date: 20170830
  Serious: Yes (Death, Other)
  Sender: FDA-Public Use
  Company Number: GB-009507513-1612GBR004664

PATIENT
  Age: 77 Year
  Sex: Female

DRUGS (2)
  1. KEYTRUDA [Suspect]
     Active Substance: PEMBROLIZUMAB
     Indication: MALIGNANT MELANOMA
     Dosage: 2 MG/KG; ONLY TWO CYCLES
     Route: 042
     Dates: start: 20160310, end: 20160718
  2. ANASTROZOLE. [Concomitant]
     Active Substance: ANASTROZOLE
     Indication: BREAST CANCER
     Dosage: UNK

REACTIONS (5)
  - Malignant neoplasm progression [Fatal]
  - Facial bones fracture [Fatal]
  - Hepatic function abnormal [Fatal]
  - Hepatotoxicity [Fatal]
  - Acute kidney injury [Fatal]
